FAERS Safety Report 6788631-5 (Version None)
Quarter: 2010Q2

REPORT INFORMATION
  Report Type: 
  Country: None (occurrence: None)
  Receive Date: 20100623
  Receipt Date: 20080424
  Transmission Date: 20101027
  Serious: No
  Sender: FDA-Public Use
  Company Number: US-PFIZER INC-2008033169

PATIENT
  Sex: Female
  Weight: 77.272 kg

DRUGS (6)
  1. XALATAN [Suspect]
     Indication: GLAUCOMA
     Route: 047
  2. TRAVATAN [Suspect]
     Indication: GLAUCOMA
     Dates: start: 20080101, end: 20080101
  3. TRUSOPT [Concomitant]
  4. COZAAR [Concomitant]
  5. CYSTEINE [Concomitant]
  6. MURO 128 [Concomitant]

REACTIONS (4)
  - BACK PAIN [None]
  - INTRAOCULAR PRESSURE INCREASED [None]
  - PULMONARY CONGESTION [None]
  - UNEVALUABLE EVENT [None]
